FAERS Safety Report 7469063-3 (Version None)
Quarter: 2011Q2

REPORT INFORMATION
  Report Type: 
  Country: None (occurrence: None)
  Receive Date: 20110429
  Receipt Date: 20110421
  Transmission Date: 20111010
  Serious: Yes (Hospitalization, Disabling)
  Sender: FDA-Public Use
  Company Number: 2011SP012264

PATIENT
  Age: 2 Year
  Sex: Male

DRUGS (6)
  1. PREGNYL [Suspect]
     Indication: CRYPTORCHISM
     Dosage: 1500 IU; ONCE;IM
     Dates: start: 20041112
  2. PREGNYL [Suspect]
     Indication: CRYPTORCHISM
     Dosage: 1500 IU; ONCE;IM
     Dates: start: 20040901
  3. PREGNYL [Suspect]
     Indication: CRYPTORCHISM
     Dosage: 1500 IU; ONCE;IM
     Dates: start: 20041126
  4. PREGNYL [Suspect]
     Indication: CRYPTORCHISM
     Dosage: 1500 IU; ONCE;IM
     Dates: start: 20041105
  5. PREGNYL [Suspect]
     Indication: CRYPTORCHISM
     Dosage: 1500 IU; ONCE;IM
     Dates: start: 20040825
  6. PREGNYL [Suspect]
     Indication: CRYPTORCHISM
     Dosage: 1500 IU; ONCE;IM
     Dates: start: 20041029

REACTIONS (5)
  - DEVELOPMENTAL DELAY [None]
  - OVERDOSE [None]
  - RESTLESSNESS [None]
  - MENTAL RETARDATION [None]
  - PSYCHOMOTOR HYPERACTIVITY [None]
